FAERS Safety Report 22391085 (Version 1)
Quarter: 2023Q2

REPORT INFORMATION
  Report Type: Spontaneous
  Country: US (occurrence: US)
  Receive Date: 20230601
  Receipt Date: 20230601
  Transmission Date: 20230721
  Serious: Yes (Other)
  Sender: FDA-Public Use
  Company Number: US-BRISTOL-MYERS SQUIBB COMPANY-2023-074653

PATIENT
  Age: 57 Year
  Sex: Male

DRUGS (1)
  1. POMALYST [Suspect]
     Active Substance: POMALIDOMIDE
     Indication: Plasma cell myeloma
     Dosage: FREQ: TAKE 1 CAP BY MOUTH DAILY W/ WATER W/ OR W/OUT FOOD AT THE SAME TIME DAILY.
     Route: 048
     Dates: start: 20230511

REACTIONS (2)
  - Feeling abnormal [Not Recovered/Not Resolved]
  - Infusion site nerve damage [Not Recovered/Not Resolved]
